FAERS Safety Report 8502437-8 (Version None)
Quarter: 2012Q3

REPORT INFORMATION
  Report Type: 
  Country: None (occurrence: None)
  Receive Date: 20120711
  Receipt Date: 20120708
  Transmission Date: 20120928
  Serious: Yes (Hospitalization, Other)
  Sender: FDA-Public Use
  Company Number: PHHY2012BR051619

PATIENT
  Sex: Female

DRUGS (4)
  1. LEVOTHYROXINE SODIUM [Concomitant]
     Indication: HYPOTHYROIDISM
     Dosage: 120 MG, QD
     Route: 048
  2. DIOVAN HCT [Suspect]
     Indication: HYPERTENSION
     Dosage: 1 DF (VALS 320 MG AND 12.5MG HCTZ), MORNING DAILY
     Route: 048
     Dates: start: 20100101
  3. ROXAN [Concomitant]
     Indication: HYPERTENSION
     Dosage: 5 MG, (IN THE MORNING AND AT NIGHT), BID
     Route: 048
  4. ATENOLOL [Concomitant]
     Indication: HYPERTENSION
     Dosage: 5 MG, (IN THE MORNING) QD
     Route: 048

REACTIONS (4)
  - LOWER LIMB FRACTURE [None]
  - FALL [None]
  - BLOOD PRESSURE INCREASED [None]
  - GAIT DISTURBANCE [None]
